FAERS Safety Report 9691777 (Version 2)
Quarter: 2013Q4

REPORT INFORMATION
  Report Type: Spontaneous
  Country: US (occurrence: US)
  Receive Date: 20131115
  Receipt Date: 20131216
  Transmission Date: 20140711
  Serious: Yes (Other)
  Sender: FDA-Public Use
  Company Number: US-RB-060507-13

PATIENT
  Age: 46 Year
  Sex: Female

DRUGS (4)
  1. SUBOXONE FILM [Suspect]
     Dosage: SUBOXONE FILM
     Route: 060
     Dates: start: 2010
  2. SUBOXONE FILM [Suspect]
     Dosage: SUBOXONE FILM; BEGAN MEDICALLY SUPERVISED TAPER, CUTTING THE FILM TO ACHIEVE UNKNOWN DOSING
     Route: 060
  3. SUBOXONE FILM [Suspect]
     Indication: DRUG DEPENDENCE
     Dosage: SUBOXONE FILM; TAPERED DOWN TO 4 MG DAILY BY PHYSICIAN, CUTTING THE FILM
     Route: 060
     Dates: end: 201310
  4. SUBOXONE FILM [Suspect]
     Dosage: SUBOXONE FILM; CUTTING TO PIECES ON HER OWN; UNKNOWN DAILY DOSE
     Route: 060
     Dates: start: 201310, end: 20131101

REACTIONS (8)
  - Wrong technique in drug usage process [Recovered/Resolved]
  - Malignant melanoma [Not Recovered/Not Resolved]
  - Substance abuse [Recovered/Resolved]
  - Drug withdrawal syndrome [Not Recovered/Not Resolved]
  - Diarrhoea [Not Recovered/Not Resolved]
  - Burning sensation [Not Recovered/Not Resolved]
  - Feeling hot [Not Recovered/Not Resolved]
  - Fatigue [Not Recovered/Not Resolved]
